FAERS Safety Report 12899065 (Version 2)
Quarter: 2016Q4

REPORT INFORMATION
  Report Type: Spontaneous
  Country: FR (occurrence: FR)
  Receive Date: 20161101
  Receipt Date: 20161115
  Transmission Date: 20170207
  Serious: Yes (Hospitalization)
  Sender: FDA-Public Use
  Company Number: FR-ROCHE-1847487

PATIENT
  Age: 42 Year
  Sex: Female

DRUGS (10)
  1. TOPALGIC (FRANCE) [Suspect]
     Active Substance: TRAMADOL
     Indication: BACK PAIN
     Route: 048
     Dates: start: 20160915, end: 20161011
  2. HEXATRIONE [Suspect]
     Active Substance: TRIAMCINOLONE HEXACETONIDE
     Indication: BACK PAIN
     Dosage: INJECTABLE SOLUTION, 2%
     Route: 014
     Dates: start: 20161010
  3. VALIUM [Suspect]
     Active Substance: DIAZEPAM
     Indication: BACK PAIN
     Dosage: SCORED TABLET
     Route: 065
     Dates: start: 20161001
  4. IBUPROFEN. [Suspect]
     Active Substance: IBUPROFEN
     Indication: BACK PAIN
     Route: 048
     Dates: start: 20160915, end: 20160930
  5. SOLUPRED (FRANCE) [Concomitant]
     Active Substance: PREDNISOLONE
  6. MOPRAL [Suspect]
     Active Substance: OMEPRAZOLE SODIUM
     Indication: BACK PAIN
     Route: 048
     Dates: start: 20161001
  7. VOLTARENE [Suspect]
     Active Substance: DICLOFENAC SODIUM
     Indication: BACK PAIN
     Dosage: SUSTAINED-RELEASE 75 MG, COATED-FILM TABLET
     Route: 048
     Dates: start: 20160915, end: 20160930
  8. DOLIPRANE [Suspect]
     Active Substance: ACETAMINOPHEN
     Indication: BACK PAIN
     Route: 048
     Dates: start: 20160915, end: 20160930
  9. ACUPAN [Concomitant]
     Active Substance: NEFOPAM HYDROCHLORIDE
  10. APRANAX [Suspect]
     Active Substance: NAPROXEN
     Indication: BACK PAIN
     Dosage: SCORED COATED-FILM TABLET, 550 MG
     Route: 048
     Dates: start: 20161001, end: 20161005

REACTIONS (1)
  - Thrombocytopenic purpura [Not Recovered/Not Resolved]

NARRATIVE: CASE EVENT DATE: 20161003
